FAERS Safety Report 7552053-X (Version None)
Quarter: 2011Q2

REPORT INFORMATION
  Report Type: 
  Country: None (occurrence: None)
  Receive Date: 20110616
  Receipt Date: 20110610
  Transmission Date: 20111010
  Serious: Yes (Other)
  Sender: FDA-Public Use
  Company Number: US-BAYER-2011-050884

PATIENT
  Age: 72 Year
  Sex: Female
  Weight: 75 kg

DRUGS (4)
  1. ONE A DAY WOMEN'S ACTIVE METABOLISM [Suspect]
     Indication: VITAMIN SUPPLEMENTATION
     Dosage: BOTTLE COUNT 50S
     Route: 048
     Dates: start: 20110609
  2. TIZANIDINE HCL [Concomitant]
     Dosage: DAILY DOSE 2 MG
  3. ALEVE (CAPLET) [Suspect]
     Indication: ARTHRITIS
     Dosage: DAILY DOSE 440 MG
  4. ALEVE (CAPLET) [Suspect]
     Dosage: BOTTLE COUNT 200CT
     Route: 048

REACTIONS (2)
  - SYNCOPE [None]
  - DIZZINESS [None]
